FAERS Safety Report 4740366-6 (Version None)
Quarter: 2005Q3

REPORT INFORMATION
  Report Type: 
  Country: None (occurrence: None)
  Receive Date: 20050801
  Receipt Date: 20050406
  Transmission Date: 20060218
  Serious: Yes (Hospitalization)
  Sender: FDA-Public Use
  Company Number: HQWYE893408APR05

PATIENT
  Age: 14 Year
  Sex: Female
  Weight: 65.4 kg

DRUGS (5)
  1. MINOCIN [Suspect]
     Indication: ACNE
     Dosage: 100 MG 1X PER 1 DAY, ORAL;  75 MG 1X PER 1 DAY, ORAL
     Route: 048
     Dates: start: 20040501, end: 20040701
  2. MINOCIN [Suspect]
     Indication: ACNE
     Dosage: 100 MG 1X PER 1 DAY, ORAL;  75 MG 1X PER 1 DAY, ORAL
     Route: 048
     Dates: start: 20040701, end: 20040821
  3. PROZAC [Concomitant]
  4. THERAGRAN (VITAMINS NOS) [Concomitant]
  5. ECHINACEA (ECHINACEA EXTRACT) [Concomitant]

REACTIONS (1)
  - BENIGN INTRACRANIAL HYPERTENSION [None]
